FAERS Safety Report 17142492 (Version 2)
Quarter: 2020Q1

REPORT INFORMATION
  Report Type: Spontaneous
  Country: US (occurrence: US)
  Receive Date: 20191211
  Receipt Date: 20200111
  Transmission Date: 20200409
  Serious: No
  Sender: FDA-Public Use
  Company Number: NVSC2019US065635

PATIENT
  Sex: Female

DRUGS (1)
  1. COSENTYX [Suspect]
     Active Substance: SECUKINUMAB
     Indication: PRODUCT USED FOR UNKNOWN INDICATION
     Dosage: 150 MG, QMO (BENEATH THE SKIN, USUALLY VIA INJECTION)
     Route: 058

REACTIONS (5)
  - Swelling face [Unknown]
  - Chest discomfort [Unknown]
  - Lip swelling [Unknown]
  - Respiratory disorder [Unknown]
  - Eye swelling [Unknown]
